FAERS Safety Report 8378501-3 (Version None)
Quarter: 2012Q2

REPORT INFORMATION
  Report Type: 
  Country: None (occurrence: None)
  Receive Date: 20120522
  Receipt Date: 20120518
  Transmission Date: 20120825
  Serious: Yes (Other)
  Sender: FDA-Public Use
  Company Number: US-JNJFOC-20120401877

PATIENT
  Sex: Male
  Weight: 87.09 kg

DRUGS (7)
  1. XARELTO [Suspect]
     Route: 048
     Dates: start: 20120330, end: 20120330
  2. DILTIAZEM [Concomitant]
     Indication: CARDIAC DISORDER
     Route: 048
  3. THYROID TAB [Concomitant]
     Indication: THYROID DISORDER
     Route: 048
  4. DIGOXIN [Concomitant]
     Indication: ATRIAL FIBRILLATION
     Route: 048
  5. XARELTO [Suspect]
     Indication: ATRIAL FIBRILLATION
     Route: 048
     Dates: start: 20120402
  6. AVODART [Concomitant]
     Indication: PROSTATIC DISORDER
     Route: 048
  7. LISINOPRIL [Concomitant]
     Indication: HYPERTENSION

REACTIONS (5)
  - URETHRAL PAIN [None]
  - INTERNATIONAL NORMALISED RATIO INCREASED [None]
  - CONTUSION [None]
  - CHROMATURIA [None]
  - BLOOD URINE PRESENT [None]
